FAERS Safety Report 19889607 (Version 1)
Quarter: 2021Q3

REPORT INFORMATION
  Report Type: Spontaneous
  Country: US (occurrence: US)
  Receive Date: 20210927
  Receipt Date: 20210927
  Transmission Date: 20211014
  Serious: Yes (Life-Threatening, Hospitalization, Other)
  Sender: FDA-Public Use
  Company Number: US-EVOFEM BIOSCIENCES, INC.-2021-EVO-US003364

PATIENT

DRUGS (1)
  1. PHEXXI [Suspect]
     Active Substance: CITRIC ACID MONOHYDRATE\LACTIC ACID, L-\POTASSIUM BITARTRATE
     Indication: CONTRACEPTION
     Dosage: 5 G 15?20 MINUTES BEFORE INTERCOURSE
     Route: 067
     Dates: start: 202103

REACTIONS (10)
  - Sepsis [Recovered/Resolved]
  - Kidney infection [Recovered/Resolved]
  - Hypotension [Unknown]
  - Weight decreased [Unknown]
  - Vocal cord paralysis [Not Recovered/Not Resolved]
  - Dehydration [Unknown]
  - Pneumothorax [Unknown]
  - Liver injury [Unknown]
  - Nausea [Unknown]
  - Kidney fibrosis [Unknown]

NARRATIVE: CASE EVENT DATE: 2021
